FAERS Safety Report 4555403-1 (Version None)
Quarter: 2005Q1

REPORT INFORMATION
  Report Type: 
  Country: None (occurrence: None)
  Receive Date: 20050118
  Receipt Date: 20050118
  Transmission Date: 20050727
  Serious: No
  Sender: FDA-Public Use
  Company Number: None

PATIENT
  Age: 30 Year
  Sex: Female
  Weight: 58.9676 kg

DRUGS (1)
  1. TERBUTALINE [Suspect]
     Indication: PREMATURE LABOUR
     Dosage: DAILY  SUBCUTANEOUS
     Route: 058
     Dates: start: 19951119, end: 19951220

REACTIONS (2)
  - ASPERGER'S DISORDER [None]
  - DRUG EXPOSURE DURING PREGNANCY [None]
